FAERS Safety Report 4547943-6 (Version None)
Quarter: 2004Q4

REPORT INFORMATION
  Report Type: 
  Country: None (occurrence: None)
  Receive Date: 20041220
  Receipt Date: 20040310
  Transmission Date: 20050328
  Serious: Yes (Hospitalization, Other)
  Sender: FDA-Public Use
  Company Number: US_000643124

PATIENT
  Age: 43 Year
  Sex: Male
  Weight: 61 kg

DRUGS (5)
  1. ILETIN II [Suspect]
     Indication: DIABETES MELLITUS
     Dosage: 34 U DAY
     Dates: start: 19850101
  2. REGULAR ILETIN II (PORK) [Suspect]
     Indication: DIABETES MELLITUS
     Dates: start: 19850101
  3. INSULIN [Suspect]
     Indication: DIABETES MELLITUS
     Dates: start: 19990101, end: 19990101
  4. HYDROCORTISONE [Concomitant]
  5. LIPITOR [Concomitant]

REACTIONS (5)
  - ADRENOCORTICAL INSUFFICIENCY CHRONIC [None]
  - BLOOD CHOLESTEROL INCREASED [None]
  - BLOOD GLUCOSE DECREASED [None]
  - BLOOD GLUCOSE INCREASED [None]
  - SHOCK HYPOGLYCAEMIC [None]
